FAERS Safety Report 7590475 (Version 3)
Quarter: 2014Q3

REPORT INFORMATION
  Report Type: Report from Study
  Country: US (occurrence: US)
  Receive Date: 20100917
  Receipt Date: 20140819
  Transmission Date: 20150326
  Serious: Yes (Death, Hospitalization, Other)
  Sender: FDA-Public Use
  Company Number: PHHY2010US59351

PATIENT
  Age: 26 Year
  Sex: Male

DRUGS (6)
  1. EXJADE [Suspect]
     Active Substance: DEFERASIROX
     Dosage: 1000 MG, QD
     Route: 048
     Dates: start: 20060309, end: 20120802
  2. EXJADE [Suspect]
     Active Substance: DEFERASIROX
     Dosage: 2000 MG, QD
     Dates: start: 20121031, end: 20130228
  3. EXJADE [Suspect]
     Active Substance: DEFERASIROX
     Dosage: UNK UKN, EIGHT TABLETS
  4. EXJADE [Suspect]
     Active Substance: DEFERASIROX
     Indication: THALASSAEMIA
     Dosage: 1750 MG, DAILY
  5. EXJADE [Suspect]
     Active Substance: DEFERASIROX
     Dosage: 2000 MG, QD
     Dates: start: 20121025, end: 20121030
  6. EXJADE [Suspect]
     Active Substance: DEFERASIROX
     Dosage: 2000 MG, QD
     Dates: start: 20131018

REACTIONS (4)
  - Syncope [Recovering/Resolving]
  - Lower limb fracture [Recovering/Resolving]
  - Thalassaemia [Fatal]
  - Pulmonary hypertension [Fatal]

NARRATIVE: CASE EVENT DATE: 2010
